FAERS Safety Report 8785965 (Version 1)
Quarter: 2012Q4

REPORT INFORMATION
  Report Type: 
  Country: IT (occurrence: IT)
  Receive Date: 20120914
  Receipt Date: 20120914
  Transmission Date: 20130627
  Serious: Yes (Hospitalization)
  Sender: FDA-Public Use
  Company Number: IT-SANOFI-AVENTIS-2012SA064579

PATIENT
  Age: 83 Year
  Sex: Female

DRUGS (5)
  1. STILNOX [Suspect]
     Indication: DRUG USE FOR UNKNOWN INDICATION
     Route: 048
     Dates: start: 20120420, end: 20120420
  2. BISOPROLOL FUMARATE [Concomitant]
  3. RAMIPRIL [Concomitant]
  4. LASIX [Concomitant]
  5. COUMADIN [Concomitant]

REACTIONS (3)
  - Sensation of heaviness [Unknown]
  - Fall [Unknown]
  - Sopor [Unknown]
